FAERS Safety Report 5817724-1 (Version None)
Quarter: 2008Q3

REPORT INFORMATION
  Report Type: 
  Country: None (occurrence: None)
  Receive Date: 20080722
  Receipt Date: 20080715
  Transmission Date: 20090109
  Serious: Yes (Other)
  Sender: FDA-Public Use
  Company Number: PHEH2008US05243

PATIENT
  Sex: Male
  Weight: 80.726 kg

DRUGS (4)
  1. DIOVAN [Suspect]
     Dosage: 160 MG, UNK
  2. PLAVIX [Suspect]
     Indication: STENT PLACEMENT
     Dosage: 75 MG, UNK
     Route: 048
     Dates: start: 20080401
  3. HYDROCODONE BITARTRATE + ACETAMINOPHEN [Concomitant]
  4. CARISOPRODOL [Concomitant]

REACTIONS (4)
  - COLONOSCOPY [None]
  - DIARRHOEA [None]
  - EATING DISORDER [None]
  - STENT PLACEMENT [None]
